FAERS Safety Report 5859118-9 (Version None)
Quarter: 2008Q3

REPORT INFORMATION
  Report Type: 
  Country: None (occurrence: None)
  Receive Date: 20080827
  Receipt Date: 20080818
  Transmission Date: 20090109
  Serious: Yes (Disabling)
  Sender: FDA-Public Use
  Company Number: PHHY2008BR18304

PATIENT
  Age: 66 Year
  Sex: Female

DRUGS (2)
  1. STALEVO 100 [Suspect]
     Dosage: 100/25/200 MG
     Route: 048
  2. COMTAN [Concomitant]

REACTIONS (1)
  - PARALYSIS [None]
